FAERS Safety Report 4739565-9 (Version None)
Quarter: 2005Q3

REPORT INFORMATION
  Report Type: 
  Country: None (occurrence: None)
  Receive Date: 20050810
  Receipt Date: 20050404
  Transmission Date: 20060218
  Serious: No
  Sender: FDA-Public Use
  Company Number: US-GLAXOSMITHKLINE-A0552624A

PATIENT
  Sex: Female

DRUGS (3)
  1. PAXIL [Suspect]
     Indication: PANIC DISORDER
     Dosage: 20MG PER DAY
     Route: 048
  2. PAXIL [Suspect]
     Route: 048
  3. PROGESTERONE [Concomitant]
     Route: 065

REACTIONS (1)
  - DRUG INEFFECTIVE [None]
